FAERS Safety Report 10443932 (Version 1)
Quarter: 2014Q3

REPORT INFORMATION
  Report Type: Spontaneous
  Country: US (occurrence: US)
  Receive Date: 20140910
  Receipt Date: 20140910
  Transmission Date: 20150326
  Serious: No
  Sender: FDA-Public Use
  Company Number: US-TARO-2013P1021901

PATIENT
  Age: 71 Year
  Sex: Male
  Weight: 73.94 kg

DRUGS (10)
  1. WARFARIN SODIUM TABLETS USP 5MG [Suspect]
     Active Substance: WARFARIN SODIUM
     Route: 048
     Dates: start: 201312, end: 20131208
  2. METFORMIN [Concomitant]
     Active Substance: METFORMIN HYDROCHLORIDE
  3. CENTRUM 50 PLUS [Concomitant]
  4. CITRACAL [Concomitant]
     Active Substance: CALCIUM CITRATE
  5. PRAVASTATIN [Concomitant]
     Active Substance: PRAVASTATIN\PRAVASTATIN SODIUM
  6. FLOMAX [Concomitant]
     Active Substance: TAMSULOSIN HYDROCHLORIDE
  7. WARFARIN SODIUM TABLETS USP 5MG [Suspect]
     Active Substance: WARFARIN SODIUM
     Indication: CEREBROVASCULAR ACCIDENT
     Route: 048
     Dates: start: 201311, end: 201311
  8. BABY ASPIRIN [Concomitant]
     Active Substance: ASPIRIN
  9. WARFARIN SODIUM TABLETS USP 5MG [Suspect]
     Active Substance: WARFARIN SODIUM
     Route: 048
     Dates: start: 201311
  10. INSULIN [Concomitant]
     Active Substance: INSULIN NOS

REACTIONS (4)
  - Paraesthesia [Recovered/Resolved]
  - International normalised ratio fluctuation [Recovered/Resolved]
  - Pain in extremity [Recovering/Resolving]
  - Muscular weakness [Recovered/Resolved]

NARRATIVE: CASE EVENT DATE: 201311
